FAERS Safety Report 8238208-X (Version None)
Quarter: 2012Q1

REPORT INFORMATION
  Report Type: 
  Country: None (occurrence: None)
  Receive Date: 20120326
  Receipt Date: 20120313
  Transmission Date: 20120608
  Serious: Yes (Death, Life-Threatening)
  Sender: FDA-Public Use
  Company Number: WAES 1202USA01587

PATIENT
  Age: 78 Year
  Sex: Male

DRUGS (9)
  1. ZOLINZA [Suspect]
     Indication: MYCOSIS FUNGOIDES
     Dosage: 400 MG/DAILY 100 MG/DAILY 200 MG/DAILY, PO
     Route: 048
     Dates: start: 20111216, end: 20120101
  2. ZOLINZA [Suspect]
     Indication: MYCOSIS FUNGOIDES
     Dosage: 400 MG/DAILY 100 MG/DAILY 200 MG/DAILY, PO
     Route: 048
     Dates: start: 20111111, end: 20111115
  3. ZOLINZA [Suspect]
     Indication: MYCOSIS FUNGOIDES
     Dosage: 400 MG/DAILY 100 MG/DAILY 200 MG/DAILY, PO
     Route: 048
     Dates: start: 20111206, end: 20111215
  4. OLOPATADINE HCL [Concomitant]
  5. GLUFAST [Concomitant]
  6. PREDNISOLONE [Concomitant]
  7. ANTEBATE [Concomitant]
  8. LOXONIN [Concomitant]
  9. LANSOPRAZOLE [Concomitant]

REACTIONS (19)
  - HAEMOGLOBIN DECREASED [None]
  - BLOOD CALCIUM INCREASED [None]
  - RESPIRATORY FAILURE [None]
  - BLOOD ALKALINE PHOSPHATASE INCREASED [None]
  - BLOOD CREATININE INCREASED [None]
  - GLOMERULAR FILTRATION RATE DECREASED [None]
  - BLOOD CHLORIDE INCREASED [None]
  - BLOOD ALBUMIN DECREASED [None]
  - PROTEIN TOTAL DECREASED [None]
  - DISEASE COMPLICATION [None]
  - CEREBRAL INFARCTION [None]
  - RED BLOOD CELL COUNT DECREASED [None]
  - BLOOD POTASSIUM INCREASED [None]
  - MEAN CELL HAEMOGLOBIN CONCENTRATION DECREASED [None]
  - RENAL DISORDER [None]
  - HAEMATOCRIT DECREASED [None]
  - HIGH DENSITY LIPOPROTEIN DECREASED [None]
  - BLOOD UREA INCREASED [None]
  - C-REACTIVE PROTEIN INCREASED [None]
